FAERS Safety Report 4577096-X (Version None)
Quarter: 2005Q1

REPORT INFORMATION
  Report Type: 
  Country: None (occurrence: None)
  Receive Date: 20050210
  Receipt Date: 20041122
  Transmission Date: 20050727
  Serious: Yes (Death)
  Sender: FDA-Public Use
  Company Number: PHBS2004JP15800

PATIENT
  Age: 70 Year
  Sex: Male

DRUGS (1)
  1. VOLTAREN [Suspect]
     Dosage: 200 MG/DAY
     Route: 054
     Dates: start: 20021012, end: 20021014

REACTIONS (2)
  - PANCYTOPENIA [None]
  - PNEUMONIA [None]
